FAERS Safety Report 16987810 (Version 1)
Quarter: 2019Q4

REPORT INFORMATION
  Report Type: Spontaneous
  Country: GB (occurrence: GB)
  Receive Date: 20191104
  Receipt Date: 20191104
  Transmission Date: 20200122
  Serious: Yes (Hospitalization, Other)
  Sender: FDA-Public Use
  Company Number: GB-DEXPHARM-20190923

PATIENT
  Age: 28 Year
  Sex: Female
  Weight: 101 kg

DRUGS (3)
  1. ESCITALOPRAM [Suspect]
     Active Substance: ESCITALOPRAM OXALATE
     Indication: PRODUCT USED FOR UNKNOWN INDICATION
  2. OMEPRAZOLE. [Suspect]
     Active Substance: OMEPRAZOLE
     Indication: ABDOMINAL PAIN UPPER
     Route: 048
     Dates: start: 20190925, end: 20191002
  3. SALBUTAMOL [Concomitant]
     Active Substance: ALBUTEROL

REACTIONS (11)
  - Paranoia [Recovered/Resolved]
  - Pyrexia [Recovered/Resolved]
  - Nausea [Recovered/Resolved]
  - Suicide attempt [Recovering/Resolving]
  - Muscle spasms [Recovered/Resolved with Sequelae]
  - Malaise [Recovering/Resolving]
  - Hyperhidrosis [Recovered/Resolved]
  - Suicidal behaviour [Recovered/Resolved]
  - Drug interaction [Unknown]
  - Seizure [Recovered/Resolved with Sequelae]
  - Loss of consciousness [Recovered/Resolved with Sequelae]

NARRATIVE: CASE EVENT DATE: 20191001
